FAERS Safety Report 15227980 (Version 3)
Quarter: 2018Q3

REPORT INFORMATION
  Report Type: Spontaneous
  Country: ES (occurrence: ES)
  Receive Date: 20180801
  Receipt Date: 20180912
  Transmission Date: 20181010
  Serious: Yes (Death)
  Sender: FDA-Public Use
  Company Number: ES-ALLERGAN-1837943US

PATIENT
  Age: 64 Year
  Sex: Male

DRUGS (18)
  1. COLISTIMETHATE [Suspect]
     Active Substance: COLISTIMETHATE SODIUM
     Indication: PNEUMONIA
     Dosage: UNK
     Route: 065
     Dates: start: 20161213
  2. INSULIN [Concomitant]
     Active Substance: INSULIN NOS
  3. METHYLPREDNISOLONE. [Concomitant]
     Active Substance: METHYLPREDNISOLONE
  4. FENTANYL. [Concomitant]
     Active Substance: FENTANYL
  5. METOCLOPRAMIDE. [Concomitant]
     Active Substance: METOCLOPRAMIDE
  6. PROPOFOL. [Concomitant]
     Active Substance: PROPOFOL
  7. PANTOPRAZOLE [Concomitant]
     Active Substance: PANTOPRAZOLE
  8. INTRAVENOUS FLUIDS (SALINE) [Concomitant]
     Route: 042
  9. CEFTAZIDIME;AVIBACTAM ? BP [Suspect]
     Active Substance: AVIBACTAM SODIUM\CEFTAZIDIME
     Indication: PNEUMONIA
     Dosage: UNK
     Route: 065
     Dates: start: 20161213
  10. RIFAMPIN. [Concomitant]
     Active Substance: RIFAMPIN
  11. NORADRENALIN HOSPIRA [Concomitant]
  12. PYRAZINAMIDE. [Concomitant]
     Active Substance: PYRAZINAMIDE
  13. COLISTIMETHATE SODIUM. [Concomitant]
     Active Substance: COLISTIMETHATE SODIUM
  14. CALCIUM GLUCONATE. [Concomitant]
     Active Substance: CALCIUM GLUCONATE
  15. SALBUTAMOL [Concomitant]
     Active Substance: ALBUTEROL
  16. IPRATROPIUM [Concomitant]
     Active Substance: IPRATROPIUM
  17. ENOXAPARIN [Concomitant]
     Active Substance: ENOXAPARIN
  18. ISONIAZID. [Concomitant]
     Active Substance: ISONIAZID

REACTIONS (1)
  - Drug ineffective [Fatal]

NARRATIVE: CASE EVENT DATE: 20161213
